FAERS Safety Report 6288790-7 (Version None)
Quarter: 2009Q3

REPORT INFORMATION
  Report Type: 
  Country: None (occurrence: None)
  Receive Date: 20090729
  Receipt Date: 20090721
  Transmission Date: 20100115
  Serious: Yes (Hospitalization)
  Sender: FDA-Public Use
  Company Number: DE-ABBOTT-09P-062-0586458-00

PATIENT
  Sex: Male

DRUGS (8)
  1. HUMIRA [Suspect]
     Indication: PSORIATIC ARTHROPATHY
     Dates: start: 20061001
  2. CIPRAMIL [Concomitant]
     Indication: DRUG USE FOR UNKNOWN INDICATION
  3. DIURAL [Concomitant]
     Indication: DRUG USE FOR UNKNOWN INDICATION
  4. ALLOPURINOL [Concomitant]
     Indication: DRUG USE FOR UNKNOWN INDICATION
  5. UNAT [Concomitant]
     Indication: DRUG USE FOR UNKNOWN INDICATION
  6. LACTULOSE [Concomitant]
     Indication: DRUG USE FOR UNKNOWN INDICATION
  7. BETABION [Concomitant]
     Indication: DRUG USE FOR UNKNOWN INDICATION
  8. URSO FALK [Concomitant]
     Indication: DRUG USE FOR UNKNOWN INDICATION

REACTIONS (2)
  - GASTRIC DISORDER [None]
  - GASTROINTESTINAL DISORDER [None]
